FAERS Safety Report 6017797-X (Version None)
Quarter: 2008Q4

REPORT INFORMATION
  Report Type: 
  Country: None (occurrence: None)
  Receive Date: 20081223
  Receipt Date: 20081216
  Transmission Date: 20090506
  Serious: Yes (Death)
  Sender: FDA-Public Use
  Company Number: DE-SANOFI-SYNTHELABO-F01200501538

PATIENT
  Sex: Male

DRUGS (8)
  1. PANTOZOL [Concomitant]
     Dates: start: 20050518, end: 20050729
  2. FRAGMIN [Concomitant]
     Dates: start: 20050518, end: 20050720
  3. GRANISETRON HCL [Concomitant]
     Dates: start: 20050518, end: 20050720
  4. DEXAMETHASONE [Concomitant]
     Dates: start: 20050518, end: 20050720
  5. DALTEPARIN SODIUM [Concomitant]
     Dates: start: 20050518, end: 20050729
  6. BEVACIZUMAB [Suspect]
     Dosage: Q2W OR Q3W
     Route: 042
  7. CAPECITABINE [Suspect]
     Route: 048
  8. OXALIPLATIN [Suspect]
     Indication: COLON CANCER
     Dosage: Q2W OR Q3W
     Route: 042

REACTIONS (1)
  - DEATH [None]
